FAERS Safety Report 12300644 (Version 1)
Quarter: 2016Q2

REPORT INFORMATION
  Report Type: Spontaneous
  Country: US (occurrence: US)
  Receive Date: 20160425
  Receipt Date: 20160425
  Transmission Date: 20160815
  Serious: Yes (Hospitalization, Other)
  Sender: FDA-Public Use
  Company Number: US-PURDUE-USA-2016-0130392

PATIENT
  Age: 0 Year
  Sex: Female

DRUGS (11)
  1. VERSED [Concomitant]
     Active Substance: MIDAZOLAM HYDROCHLORIDE
     Indication: SURGERY
     Dosage: 4 MG, UNK
     Route: 042
     Dates: start: 20151005, end: 20151005
  2. DURAGESIC [Concomitant]
     Active Substance: FENTANYL
     Indication: PRODUCT USED FOR UNKNOWN INDICATION
     Dosage: 100 MCG/HR, Q72H
     Route: 062
     Dates: start: 20151001, end: 20151007
  3. DILAUDID [Suspect]
     Active Substance: HYDROMORPHONE HYDROCHLORIDE
     Dosage: 2 MG/ML, Q2H
     Route: 042
     Dates: start: 20151001, end: 20151006
  4. ATIVAN [Concomitant]
     Active Substance: LORAZEPAM
     Indication: VOMITING
  5. ROXICODONE [Concomitant]
     Active Substance: OXYCODONE HYDROCHLORIDE
     Indication: BREAKTHROUGH PAIN
     Dosage: 15 MG, UNK
     Route: 048
  6. PHENYLEPHRINE [Concomitant]
     Active Substance: PHENYLEPHRINE\PHENYLEPHRINE HYDROCHLORIDE
     Indication: SURGERY
     Dosage: 100 MCG/ML, UNK
     Route: 065
     Dates: start: 20151005, end: 20151005
  7. RIVAROXABAN [Concomitant]
     Active Substance: RIVAROXABAN
     Indication: PRODUCT USED FOR UNKNOWN INDICATION
     Dosage: UNK
     Route: 065
  8. ATIVAN [Concomitant]
     Active Substance: LORAZEPAM
     Indication: NAUSEA
     Dosage: 1 MG, Q6H
     Route: 048
     Dates: start: 20150930, end: 20151007
  9. DILAUDID [Suspect]
     Active Substance: HYDROMORPHONE HYDROCHLORIDE
     Indication: PAIN
     Dosage: 1 MG/ML, PRN
     Route: 042
     Dates: start: 20150915, end: 20151005
  10. FLEXERIL [Concomitant]
     Active Substance: CYCLOBENZAPRINE HYDROCHLORIDE
     Indication: MUSCLE SPASMS
     Dosage: 10 MG, TID
     Route: 048
     Dates: start: 20150930, end: 20151007
  11. SUBLIMAZE [Concomitant]
     Active Substance: FENTANYL CITRATE
     Indication: PAIN
     Dosage: 50 MCG/HR, PRN
     Route: 042
     Dates: start: 20151005, end: 20151005

REACTIONS (4)
  - Oedema peripheral [Recovering/Resolving]
  - Confusional state [Recovered/Resolved]
  - Embolism [Recovering/Resolving]
  - Encephalopathy [Recovered/Resolved]

NARRATIVE: CASE EVENT DATE: 20150924
